FAERS Safety Report 15597140 (Version 1)
Quarter: 2018Q4

REPORT INFORMATION
  Report Type: Spontaneous
  Country: US (occurrence: US)
  Receive Date: 20181102
  Receipt Date: 20181102
  Transmission Date: 20190205
  Serious: Yes (Hospitalization)
  Sender: FDA-Public Use
  Company Number: None

PATIENT
  Age: 67 Year
  Sex: Male
  Weight: 93.44 kg

DRUGS (1)
  1. GABAPENTIN. [Suspect]
     Active Substance: GABAPENTIN
     Indication: PAIN
     Route: 048
     Dates: start: 20140402, end: 20170717

REACTIONS (9)
  - Lethargy [None]
  - Incorrect dose administered [None]
  - Hepatic enzyme increased [None]
  - Confusional state [None]
  - Agitation [None]
  - Hyperlipidaemia [None]
  - Ammonia increased [None]
  - Hypertension [None]
  - Sedation [None]

NARRATIVE: CASE EVENT DATE: 20170716
